FAERS Safety Report 24360155 (Version 1)
Quarter: 2024Q3

REPORT INFORMATION
  Report Type: Spontaneous
  Country: US (occurrence: US)
  Receive Date: 20240925
  Receipt Date: 20240925
  Transmission Date: 20241016
  Serious: Yes (Hospitalization, Other)
  Sender: AUROBINDO
  Company Number: US-MLMSERVICE-20210212-2721451-1

PATIENT
  Age: 63 Year
  Sex: Female

DRUGS (2)
  1. PREDNISONE [Suspect]
     Active Substance: PREDNISONE
     Indication: Pleuropericarditis
     Dosage: UNK
     Route: 065
  2. MYCOPHENOLIC ACID [Suspect]
     Active Substance: MYCOPHENOLIC ACID
     Indication: Pleuropericarditis
     Dosage: UNK
     Route: 065

REACTIONS (6)
  - Anaemia macrocytic [Unknown]
  - Conjunctival hyperaemia [Unknown]
  - Histoplasmosis disseminated [Unknown]
  - Meningitis histoplasma [Unknown]
  - Pulmonary embolism [Unknown]
  - Thrombocytopenia [Unknown]
